FAERS Safety Report 21739554 (Version 1)
Quarter: 2022Q4

REPORT INFORMATION
  Report Type: Spontaneous
  Country: US (occurrence: US)
  Receive Date: 20221216
  Receipt Date: 20221216
  Transmission Date: 20230112
  Serious: No
  Sender: FDA-Public Use
  Company Number: US-BRISTOL-MYERS SQUIBB COMPANY-2022-154069

PATIENT
  Age: 51 Year
  Sex: Male

DRUGS (1)
  1. REVLIMID [Suspect]
     Active Substance: LENALIDOMIDE
     Indication: Plasma cell myeloma
     Dosage: FREQ - TAKE CAPSULE BY MOUTH WTTH WATER AT THE SAME TIME EVERY DAY ON DAYS 1-14 OF EACH 21 DAY CYCLE
     Route: 048
     Dates: start: 20211103

REACTIONS (1)
  - Off label use [Unknown]
